FAERS Safety Report 14182761 (Version 2)
Quarter: 2017Q4

REPORT INFORMATION
  Report Type: Spontaneous
  Country: NL (occurrence: NL)
  Receive Date: 20171113
  Receipt Date: 20171214
  Transmission Date: 20180321
  Serious: Yes (Hospitalization, Other)
  Sender: FDA-Public Use
  Company Number: NL-APOTEX-2017AP020990

PATIENT
  Sex: Female

DRUGS (1)
  1. CARBAMAZEPINE APOTEX TABLETTEN [Suspect]
     Active Substance: CARBAMAZEPINE
     Indication: PRODUCT USED FOR UNKNOWN INDICATION
     Dosage: UNK
     Route: 048

REACTIONS (2)
  - Seizure [Recovered/Resolved]
  - Restlessness [Recovered/Resolved]
